FAERS Safety Report 17347385 (Version 3)
Quarter: 2023Q2

REPORT INFORMATION
  Report Type: Spontaneous
  Country: US (occurrence: US)
  Receive Date: 20200130
  Receipt Date: 20230607
  Transmission Date: 20230722
  Serious: Yes (Death, Other)
  Sender: FDA-Public Use
  Company Number: US-GILEAD-2020-0448790

PATIENT
  Age: 28 Year
  Sex: Male

DRUGS (15)
  1. VIREAD [Suspect]
     Active Substance: TENOFOVIR DISOPROXIL FUMARATE
     Indication: HIV infection
     Dosage: UNK
     Route: 048
     Dates: start: 201706, end: 201812
  2. BIKTARVY [Concomitant]
     Active Substance: BICTEGRAVIR SODIUM\EMTRICITABINE\TENOFOVIR ALAFENAMIDE FUMARATE
  3. EMTRICITABINE [Concomitant]
     Active Substance: EMTRICITABINE
  4. TRIUMEQ [Concomitant]
     Active Substance: ABACAVIR SULFATE\DOLUTEGRAVIR SODIUM\LAMIVUDINE
  5. ABACAVIR SULFATE\DOLUTEGRAVIR SODIUM\LAMIVUDINE [Concomitant]
     Active Substance: ABACAVIR SULFATE\DOLUTEGRAVIR SODIUM\LAMIVUDINE
  6. AZITHROMYCIN [Concomitant]
     Active Substance: AZITHROMYCIN
  7. CITALOPRAM [Concomitant]
     Active Substance: CITALOPRAM HYDROBROMIDE
  8. ETHAMBUTOL [Concomitant]
     Active Substance: ETHAMBUTOL HYDROCHLORIDE
  9. LAMIVUDINE [Concomitant]
     Active Substance: LAMIVUDINE
  10. RIFAMPIN [Concomitant]
     Active Substance: RIFAMPIN
  11. VENTOLIN HFA [Concomitant]
     Active Substance: ALBUTEROL SULFATE
  12. DAPSONE [Concomitant]
     Active Substance: DAPSONE
  13. DOLUTEGRAVIR [Concomitant]
     Active Substance: DOLUTEGRAVIR
  14. FERROUS SULFATE [Concomitant]
     Active Substance: FERROUS SULFATE
  15. ZIAGEN [Concomitant]
     Active Substance: ABACAVIR SULFATE

REACTIONS (10)
  - Renal failure [Fatal]
  - Renal failure [Fatal]
  - End stage renal disease [Recovered/Resolved]
  - Economic problem [Not Recovered/Not Resolved]
  - Anhedonia [Not Recovered/Not Resolved]
  - Emotional distress [Not Recovered/Not Resolved]
  - Anxiety [Not Recovered/Not Resolved]
  - Pain [Not Recovered/Not Resolved]
  - Illness [Unknown]
  - Emotional distress [Unknown]

NARRATIVE: CASE EVENT DATE: 20180501
